FAERS Safety Report 13869806 (Version 4)
Quarter: 2018Q3

REPORT INFORMATION
  Report Type: Spontaneous
  Country: JP (occurrence: JP)
  Receive Date: 20170815
  Receipt Date: 20180815
  Transmission Date: 20181010
  Serious: Yes (Life-Threatening, Hospitalization, Other)
  Sender: FDA-Public Use
  Company Number: JP-009507513-1705JPN001036J

PATIENT
  Age: 74 Year
  Sex: Male
  Weight: 46 kg

DRUGS (5)
  1. SOL?MELCORT [Suspect]
     Active Substance: METHYLPREDNISOLONE SODIUM SUCCINATE
     Dosage: 1000 MG, QD
     Route: 051
     Dates: start: 20170502, end: 20170504
  2. SOL?MELCORT [Suspect]
     Active Substance: METHYLPREDNISOLONE SODIUM SUCCINATE
     Indication: INTERSTITIAL LUNG DISEASE
     Dosage: 1000 MG, QD
     Route: 051
     Dates: start: 20170421, end: 20170423
  3. SOL?MELCORT [Suspect]
     Active Substance: METHYLPREDNISOLONE SODIUM SUCCINATE
     Dosage: 60 MG, QD
     Route: 051
     Dates: start: 20170505, end: 20170511
  4. KEYTRUDA [Suspect]
     Active Substance: PEMBROLIZUMAB
     Indication: LUNG ADENOCARCINOMA
     Dosage: 200 MG, Q3W
     Route: 041
     Dates: start: 20170419, end: 20170419
  5. PANVITAN [Concomitant]
     Dosage: 1.0 MG, QD
     Route: 048
     Dates: start: 20161108, end: 20170424

REACTIONS (2)
  - Interstitial lung disease [Recovered/Resolved]
  - Diabetes mellitus [Recovered/Resolved]

NARRATIVE: CASE EVENT DATE: 20170421
